FAERS Safety Report 4639346-0 (Version None)
Quarter: 2005Q2

REPORT INFORMATION
  Report Type: 
  Country: None (occurrence: None)
  Receive Date: 20050418
  Receipt Date: 20050405
  Transmission Date: 20051028
  Serious: Yes (Disabling, Other)
  Sender: FDA-Public Use
  Company Number: 2004120230

PATIENT
  Age: 52 Year
  Sex: Male
  Weight: 68.0396 kg

DRUGS (2)
  1. CELEBREX [Suspect]
     Indication: OSTEOARTHRITIS
     Dosage: 200 MG (200 MG, 1 IN 1 D), ORAL
     Route: 048
     Dates: start: 20030101
  2. VITAMINS (VITAMINS) [Concomitant]

REACTIONS (8)
  - ATROPHY [None]
  - DRUG INEFFECTIVE [None]
  - GUN SHOT WOUND [None]
  - IMPAIRED WORK ABILITY [None]
  - JOINT RANGE OF MOTION DECREASED [None]
  - PAIN [None]
  - PROCEDURAL COMPLICATION [None]
  - SYNOSTOSIS [None]
